FAERS Safety Report 11286389 (Version 1)
Quarter: 2015Q3

REPORT INFORMATION
  Report Type: Spontaneous
  Country: US (occurrence: None)
  Receive Date: 20150717
  Receipt Date: 20150717
  Transmission Date: 20151125
  Serious: Yes (Hospitalization)
  Sender: FDA-Public Use
  Company Number: PR-AE15-000529

PATIENT
  Sex: Female

DRUGS (1)
  1. BC [Suspect]
     Active Substance: ASPIRIN\CAFFEINE
     Indication: PRODUCT USED FOR UNKNOWN INDICATION
     Route: 048

REACTIONS (2)
  - Internal haemorrhage [None]
  - Ulcer [None]
